FAERS Safety Report 8902483 (Version 2)
Quarter: 2012Q4

REPORT INFORMATION
  Report Type: 
  Country: US (occurrence: US)
  Receive Date: 20121112
  Receipt Date: 20121221
  Transmission Date: 20130627
  Serious: Yes (Other)
  Sender: FDA-Public Use
  Company Number: US-PFIZER INC-2012281577

PATIENT
  Age: 48 Year
  Sex: Female
  Weight: 90.7 kg

DRUGS (10)
  1. CHANTIX [Suspect]
     Indication: SMOKING CESSATION THERAPY
     Dosage: 0.5 mg, 1x/day
     Route: 048
     Dates: start: 201108, end: 20110913
  2. CHANTIX [Interacting]
     Dosage: UNK
     Route: 048
     Dates: start: 201208, end: 201211
  3. CELEBREX [Interacting]
     Dosage: UNK
  4. LISINOPRIL [Concomitant]
     Dosage: UNK
  5. SIMVASTATIN [Concomitant]
     Dosage: UNK
  6. HYDROCHLOROTHIAZIDE [Concomitant]
     Dosage: UNK
  7. NORCO [Concomitant]
     Dosage: UNK
  8. LYRICA [Concomitant]
     Dosage: UNK
  9. CARVEDILOL [Concomitant]
     Dosage: UNK
  10. SOMA [Concomitant]
     Dosage: UNK

REACTIONS (6)
  - Drug interaction [Unknown]
  - Hypertension [Unknown]
  - Muscle spasms [Unknown]
  - Headache [Unknown]
  - Nausea [Unknown]
  - Malaise [Unknown]
